FAERS Safety Report 24776175 (Version 1)
Quarter: 2024Q4

REPORT INFORMATION
  Report Type: Spontaneous
  Country: CN (occurrence: CN)
  Receive Date: 20241226
  Receipt Date: 20241226
  Transmission Date: 20250115
  Serious: Yes (Other)
  Sender: ASTELLAS
  Company Number: CN-ASTELLAS-2024-AER-027712

PATIENT
  Age: 49 Year
  Sex: Male
  Weight: 58.0 kg

DRUGS (2)
  1. ISAVUCONAZONIUM SULFATE [Suspect]
     Active Substance: ISAVUCONAZONIUM SULFATE
     Indication: Pneumonia
     Dosage: TID
     Route: 042
     Dates: start: 20240926, end: 20240927
  2. ISAVUCONAZONIUM SULFATE [Suspect]
     Active Substance: ISAVUCONAZONIUM SULFATE
     Indication: Fungal infection
     Dosage: QD
     Route: 042
     Dates: start: 20240928, end: 20241001

REACTIONS (4)
  - Pulmonary oedema [Recovering/Resolving]
  - Off label use [Unknown]
  - Tachypnoea [Recovering/Resolving]
  - Chest discomfort [Recovering/Resolving]

NARRATIVE: CASE EVENT DATE: 20240926
